FAERS Safety Report 8197523-9 (Version None)
Quarter: 2012Q1

REPORT INFORMATION
  Report Type: 
  Country: None (occurrence: None)
  Receive Date: 20120309
  Receipt Date: 20120229
  Transmission Date: 20120608
  Serious: Yes (Other)
  Sender: FDA-Public Use
  Company Number: MY-MILLENNIUM PHARMACEUTICALS, INC.-2012-01536

PATIENT

DRUGS (1)
  1. VELCADE [Suspect]
     Indication: MULTIPLE MYELOMA
     Dosage: 2 MG, UNK
     Route: 042

REACTIONS (4)
  - DYSPNOEA [None]
  - ABDOMINAL DISTENSION [None]
  - ORTHOPNOEA [None]
  - COUGH [None]
